FAERS Safety Report 9846694 (Version 1)
Quarter: 2014Q1

REPORT INFORMATION
  Report Type: Spontaneous
  Country: CA (occurrence: CA)
  Receive Date: 20140127
  Receipt Date: 20140127
  Transmission Date: 20141002
  Serious: Yes (Other)
  Sender: FDA-Public Use
  Company Number: CA-GE HEALTHCARE MEDICAL DIAGNOSTICS-OSCN-PR-1401S-0006

PATIENT
  Age: 40 Year
  Sex: Female
  Weight: 74.91 kg

DRUGS (3)
  1. OMNISCAN [Suspect]
     Indication: MULTIPLE SCLEROSIS
     Route: 042
     Dates: start: 20140116, end: 20140116
  2. OMNISCAN [Suspect]
     Indication: DIAGNOSTIC PROCEDURE
  3. NO DRUG NAME [Concomitant]

REACTIONS (2)
  - Paraesthesia oral [Unknown]
  - Pruritus [Unknown]
